FAERS Safety Report 10625100 (Version 1)
Quarter: 2014Q4

REPORT INFORMATION
  Report Type: Spontaneous
  Country: BR (occurrence: None)
  Receive Date: 20141202
  Receipt Date: 20141202
  Transmission Date: 20150529
  Serious: Yes (Hospitalization)
  Sender: FDA-Public Use
  Company Number: BR-DEXPHARM-20140977

PATIENT
  Age: 68 Year
  Sex: Female

DRUGS (5)
  1. OMEPRAZOLE. [Suspect]
     Active Substance: OMEPRAZOLE
  2. ISOSORBIDE [Concomitant]
     Active Substance: ISOSORBIDE
  3. CLOPIDOGREL [Concomitant]
     Active Substance: CLOPIDOGREL BISULFATE
  4. SIMVASTATIN. [Concomitant]
     Active Substance: SIMVASTATIN
  5. FOLIC ACID. [Concomitant]
     Active Substance: FOLIC ACID

REACTIONS (10)
  - Fatigue [None]
  - Cough [None]
  - Chills [None]
  - Leukopenia [None]
  - Decreased appetite [None]
  - Drug interaction [None]
  - Dyspnoea exertional [None]
  - Diarrhoea [None]
  - Haemoglobin decreased [None]
  - Pyrexia [None]
